FAERS Safety Report 6904215-X (Version None)
Quarter: 2010Q3

REPORT INFORMATION
  Report Type: 
  Country: None (occurrence: None)
  Receive Date: 20100804
  Receipt Date: 20090330
  Transmission Date: 20110219
  Serious: No
  Sender: FDA-Public Use
  Company Number: US-PFIZER INC-2009169617

PATIENT
  Sex: Female
  Weight: 57.6 kg

DRUGS (3)
  1. LYRICA [Suspect]
     Indication: MUSCULOSKELETAL PAIN
     Dosage: 75 MG, 4X/DAY
     Route: 048
     Dates: start: 20080101, end: 20090208
  2. LYRICA [Suspect]
     Indication: NECK PAIN
  3. OMEPRAZOLE [Concomitant]

REACTIONS (4)
  - DIARRHOEA [None]
  - HYPERTENSION [None]
  - MALAISE [None]
  - NAUSEA [None]
